FAERS Safety Report 6124711-5 (Version None)
Quarter: 2009Q1

REPORT INFORMATION
  Report Type: 
  Country: None (occurrence: None)
  Receive Date: 20090319
  Receipt Date: 20090310
  Transmission Date: 20090719
  Serious: Yes (Hospitalization, Other)
  Sender: FDA-Public Use
  Company Number: PHHY2009US09113

PATIENT

DRUGS (2)
  1. IMATINIB MESYLATE [Suspect]
     Indication: GASTROINTESTINAL STROMAL TUMOUR
     Dosage: 300 MG DAILY
  2. SUNITINIB MALATE [Concomitant]

REACTIONS (3)
  - FATIGUE [None]
  - GASTRECTOMY [None]
  - MALIGNANT NEOPLASM PROGRESSION [None]
